FAERS Safety Report 7699355-4 (Version None)
Quarter: 2011Q3

REPORT INFORMATION
  Report Type: 
  Country: None (occurrence: None)
  Receive Date: 20110819
  Receipt Date: 20110809
  Transmission Date: 20111222
  Serious: Yes (Other)
  Sender: FDA-Public Use
  Company Number: US-BAYER-201040532NA

PATIENT
  Age: 35 Year
  Sex: Female
  Weight: 82.99 kg

DRUGS (5)
  1. YAZ [Suspect]
     Indication: PRODUCT USED FOR UNKNOWN INDICATION
     Dosage: UNK
     Route: 048
  2. YAZ [Suspect]
     Dosage: UNK
     Route: 048
     Dates: start: 20100701
  3. LEXAPRO [Concomitant]
  4. ONE-A-DAY [MINERALS NOS,VITAMINS NOS] [Concomitant]
     Dosage: 1 DF, QD
  5. ALEVE-D SINUS + COLD [Concomitant]
     Dosage: 2 DF, QD

REACTIONS (3)
  - DEEP VEIN THROMBOSIS [None]
  - PAIN [None]
  - THROMBOSIS [None]
